FAERS Safety Report 24096259 (Version 1)
Quarter: 2024Q3

REPORT INFORMATION
  Report Type: Spontaneous
  Country: FR (occurrence: FR)
  Receive Date: 20240716
  Receipt Date: 20240716
  Transmission Date: 20241017
  Serious: Yes (Life-Threatening)
  Sender: RANBAXY
  Company Number: FR-AFSSAPS-NC2024000458

PATIENT
  Age: 59 Year
  Sex: Female
  Weight: 78 kg

DRUGS (10)
  1. ATENOLOL [Suspect]
     Active Substance: ATENOLOL
     Indication: Poisoning deliberate
     Dosage: UNK, NOT SPECIFIED
     Route: 048
     Dates: start: 20231104, end: 20231104
  2. QUETIAPINE [Suspect]
     Active Substance: QUETIAPINE
     Indication: Poisoning deliberate
     Dosage: NOT SPECIFIED
     Route: 048
     Dates: start: 20231104, end: 20231104
  3. PANTOPRAZOLE [Suspect]
     Active Substance: PANTOPRAZOLE
     Indication: Poisoning deliberate
     Dosage: NOT SPECIFIED
     Route: 048
     Dates: start: 20231104, end: 20231104
  4. BACLOFEN [Suspect]
     Active Substance: BACLOFEN
     Indication: Poisoning deliberate
     Dosage: NOT SPECIFIED
     Route: 048
     Dates: start: 20231104, end: 20231104
  5. VALIUM [Suspect]
     Active Substance: DIAZEPAM
     Indication: Poisoning deliberate
     Dosage: NOT SPECIFIED
     Route: 048
     Dates: start: 20231104, end: 20231104
  6. ZOLOFT [Suspect]
     Active Substance: SERTRALINE HYDROCHLORIDE
     Indication: Poisoning deliberate
     Dosage: NOT SPECIFIED
     Route: 048
     Dates: start: 20231104, end: 20231104
  7. NALMEFENE HYDROCHLORIDE DIHYDRATE [Suspect]
     Active Substance: NALMEFENE HYDROCHLORIDE DIHYDRATE
     Indication: Poisoning deliberate
     Dosage: NOT SPECIFIED
     Route: 048
     Dates: start: 20231104, end: 20231104
  8. LOPRAZOLAM [Suspect]
     Active Substance: LOPRAZOLAM
     Indication: Poisoning deliberate
     Dosage: NOT SPECIFIED
     Route: 048
     Dates: start: 20231104, end: 20231104
  9. AMITRIPTYLINE HYDROCHLORIDE [Suspect]
     Active Substance: AMITRIPTYLINE HYDROCHLORIDE
     Indication: Poisoning deliberate
     Dosage: NOT SPECIFIED
     Route: 048
     Dates: start: 20231104, end: 20231104
  10. LAMOTRIGINE [Suspect]
     Active Substance: LAMOTRIGINE
     Indication: Poisoning deliberate
     Dosage: NOT SPECIFIED
     Route: 048
     Dates: start: 20231104, end: 20231104

REACTIONS (1)
  - Coma [Recovered/Resolved]

NARRATIVE: CASE EVENT DATE: 20231104
